FAERS Safety Report 14830329 (Version 4)
Quarter: 2019Q1

REPORT INFORMATION
  Report Type: Spontaneous
  Country: US (occurrence: US)
  Receive Date: 20180430
  Receipt Date: 20190206
  Transmission Date: 20190417
  Serious: No
  Sender: FDA-Public Use
  Company Number: US-SA-2018SA026350

PATIENT
  Age: 74 Year
  Sex: Female

DRUGS (2)
  1. PRALUENT [Suspect]
     Active Substance: ALIROCUMAB
     Indication: PERIPHERAL VASCULAR DISORDER
     Dosage: 75 MG,QOW
     Route: 058
     Dates: start: 201705
  2. PRALUENT [Suspect]
     Active Substance: ALIROCUMAB
     Indication: HYPERLIPIDAEMIA

REACTIONS (6)
  - Condition aggravated [Unknown]
  - Nerve compression [Unknown]
  - Pain in extremity [Unknown]
  - Vein disorder [Unknown]
  - Muscle spasms [Unknown]
  - Dysphonia [Unknown]

NARRATIVE: CASE EVENT DATE: 2018
